FAERS Safety Report 23832017 (Version 1)
Quarter: 2024Q2

REPORT INFORMATION
  Report Type: Report from Study
  Country: US (occurrence: None)
  Receive Date: 20240508
  Receipt Date: 20240508
  Transmission Date: 20240716
  Serious: Yes (Hospitalization)
  Sender: FDA-Public Use
  Company Number: 2024A103216

PATIENT

DRUGS (1)
  1. NEXIUM [Suspect]
     Active Substance: ESOMEPRAZOLE MAGNESIUM
     Dosage: UNKNOWN
     Route: 048

REACTIONS (10)
  - Salmonellosis [Unknown]
  - Vomiting [Unknown]
  - Diarrhoea [Unknown]
  - Anaemia [Unknown]
  - Dysphagia [Unknown]
  - Spinal disorder [Unknown]
  - Gastric ulcer perforation [Unknown]
  - Gastrooesophageal reflux disease [Unknown]
  - Immunodeficiency [Unknown]
  - Product dose omission issue [Unknown]
